FAERS Safety Report 8844714 (Version 1)
Quarter: 2012Q4

REPORT INFORMATION
  Report Type: 
  Country: US (occurrence: US)
  Receive Date: 20121017
  Receipt Date: 20121017
  Transmission Date: 20130627
  Serious: No
  Sender: FDA-Public Use
  Company Number: US-BAYER-2012-107472

PATIENT
  Sex: Female

DRUGS (2)
  1. CLIMARA [Suspect]
     Dosage: 0.0375 UNK, UNK
     Route: 062
  2. CLIMARA [Suspect]
     Dosage: 0.025 mg, UNK
     Route: 062

REACTIONS (3)
  - Adverse drug reaction [None]
  - Nervousness [None]
  - Product adhesion issue [None]
